FAERS Safety Report 8321379-4 (Version None)
Quarter: 2012Q2

REPORT INFORMATION
  Report Type: 
  Country: None (occurrence: None)
  Receive Date: 20120430
  Receipt Date: 20120416
  Transmission Date: 20120825
  Serious: Yes (Disabling, Other)
  Sender: FDA-Public Use
  Company Number: BD-ASTELLAS-2012US003394

PATIENT
  Age: 26 Year
  Sex: Female
  Weight: 41 kg

DRUGS (5)
  1. ALBENDAZOLE [Concomitant]
     Indication: PRODUCT USED FOR UNKNOWN INDICATION
     Dosage: UNK
     Route: 065
     Dates: start: 20110111
  2. AMBISOME [Suspect]
     Indication: VISCERAL LEISHMANIASIS
     Dosage: 15 MG/KG, UNKNOWN/D
     Route: 065
     Dates: start: 20110111
  3. PARACETAMOL [Concomitant]
     Indication: PRODUCT USED FOR UNKNOWN INDICATION
     Dosage: UNK
     Route: 065
     Dates: start: 20110111
  4. CALCIUM [Concomitant]
     Indication: PRODUCT USED FOR UNKNOWN INDICATION
     Dosage: UNK
     Route: 065
  5. PLUMPYNUT [Concomitant]
     Indication: PRODUCT USED FOR UNKNOWN INDICATION
     Dosage: UNK
     Route: 065
     Dates: start: 20110111, end: 20110121

REACTIONS (1)
  - MYOPATHY TOXIC [None]
